FAERS Safety Report 13897849 (Version 7)
Quarter: 2018Q4

REPORT INFORMATION
  Report Type: Spontaneous
  Country: US (occurrence: US)
  Receive Date: 20170823
  Receipt Date: 20181018
  Transmission Date: 20190204
  Serious: Yes (Hospitalization, Other)
  Sender: FDA-Public Use
  Company Number: US-PFIZER INC-2017364231

PATIENT
  Age: 51 Year
  Sex: Male
  Weight: 109 kg

DRUGS (7)
  1. RAPAMUNE [Suspect]
     Active Substance: SIROLIMUS
     Indication: HEART TRANSPLANT REJECTION
     Dosage: 1.5 MG, DAILY
     Route: 048
     Dates: start: 20170817
  2. CELLCEPT [Concomitant]
     Active Substance: MYCOPHENOLATE MOFETIL\MYCOPHENOLATE MOFETIL HYDROCHLORIDE
     Dosage: 1000 MG, 2X/DAY (EVERY 12 HOURS)
     Dates: start: 20170831
  3. CELLCEPT [Concomitant]
     Active Substance: MYCOPHENOLATE MOFETIL\MYCOPHENOLATE MOFETIL HYDROCHLORIDE
     Indication: HEART TRANSPLANT
     Dosage: UNK
     Dates: start: 20170816
  4. RAPAMUNE [Suspect]
     Active Substance: SIROLIMUS
     Indication: PROPHYLAXIS AGAINST TRANSPLANT REJECTION
     Dosage: 2 MG, 1X/DAY
     Route: 048
  5. AZATHIOPRINE. [Concomitant]
     Active Substance: AZATHIOPRINE
     Indication: PROPHYLAXIS AGAINST TRANSPLANT REJECTION
     Dosage: 100 MG, 1X/DAY
     Dates: start: 1998, end: 20170815
  6. ASPIRIN. [Concomitant]
     Active Substance: ASPIRIN
     Indication: PROPHYLAXIS
     Dosage: 81 MG, 1X/DAY
  7. CARVEDILOL. [Concomitant]
     Active Substance: CARVEDILOL
     Indication: BLOOD PRESSURE ABNORMAL
     Dosage: 12.5 MG, 2X/DAY

REACTIONS (12)
  - Atrial fibrillation [Unknown]
  - Expired product administered [Unknown]
  - Abdominal distension [Unknown]
  - Peripheral swelling [Unknown]
  - Abdominal pain [Unknown]
  - Chronic kidney disease [Unknown]
  - Fatigue [Unknown]
  - Hernia [Unknown]
  - Fluid retention [Unknown]
  - Drug ineffective for unapproved indication [Unknown]
  - Drug level increased [Unknown]
  - Weight increased [Unknown]

NARRATIVE: CASE EVENT DATE: 201808
